FAERS Safety Report 7347787-6 (Version None)
Quarter: 2011Q1

REPORT INFORMATION
  Report Type: 
  Country: None (occurrence: None)
  Receive Date: 20110202
  Receipt Date: 20110217
  Transmission Date: 20110831
  Serious: Yes (Hospitalization)
  Sender: FDA-Public Use
  Company Number: 1000019001

PATIENT
  Age: 84 Year
  Sex: Female
  Weight: 80 kg

DRUGS (9)
  1. CITALOPRAM (CITALOPRAM HYDROBROMIDE) (20 MILLIGRAM, TABLETS) [Suspect]
     Dosage: 20 MG (20 MG,2 IN 1 D),ORAL
     Route: 048
     Dates: start: 20080101
  2. BERLOSIN (METAMIZOLE SODIUM) (500 MILLIGRAM, TABLETS) (METAMIZOLE SODI [Concomitant]
  3. OXYGESIC (OXYCODONE HYDROTHLORIDE) (10 MILLIGRAM, CAPSULES) (OXYCODONE [Concomitant]
  4. XARELTO [Suspect]
     Indication: THROMBOSIS PROPHYLAXIS
     Dosage: 10 MG (10 MG,1 IN 1 D),ORAL
     Route: 048
     Dates: start: 20091203, end: 20100119
  5. BLOPRESID (CANDESARTAN, HYDROCHLOROTHIAZIDE) (TABLETS) (CANDESARTAN, H [Concomitant]
  6. DESLORATADINE [Concomitant]
  7. CARMEN (LERCANIDIPINE) (10 MILLIGRAM, TABLETS) (LERCANIDIPINE) [Concomitant]
  8. BISO (BISOPROLOL FUMARATE) (5 MILLIGRAM, TABLETS) (BISOPROLOL FUMARATE [Concomitant]
  9. BLOPRESS (CANDESARTAN CILEXETIL) (32 MILLIGRAM, TABLETS) (CANDESARTAN [Concomitant]

REACTIONS (14)
  - RED BLOOD CELL COUNT INCREASED [None]
  - PROTHROMBIN TIME SHORTENED [None]
  - WOUND COMPLICATION [None]
  - RED BLOOD CELL COUNT DECREASED [None]
  - POST PROCEDURAL HAEMATOMA [None]
  - DRUG INTERACTION [None]
  - HAEMATOCRIT INCREASED [None]
  - IMPAIRED HEALING [None]
  - BLOOD CREATININE INCREASED [None]
  - BLOOD SODIUM INCREASED [None]
  - WHITE BLOOD CELL COUNT INCREASED [None]
  - PLATELET COUNT INCREASED [None]
  - BLOOD UREA INCREASED [None]
  - GAMMA-GLUTAMYLTRANSFERASE INCREASED [None]
